FAERS Safety Report 4833374-8 (Version None)
Quarter: 2005Q4

REPORT INFORMATION
  Report Type: 
  Country: None (occurrence: None)
  Receive Date: 20051117
  Receipt Date: 20051107
  Transmission Date: 20060501
  Serious: Yes (Disabling, Other)
  Sender: FDA-Public Use
  Company Number: US_0511123719

PATIENT
  Age: 43 Year
  Sex: Male
  Weight: 84 kg

DRUGS (7)
  1. HUMALOG [Suspect]
     Indication: DIABETES MELLITUS
     Dates: start: 20030101
  2. HUMULIN R [Suspect]
     Indication: DIABETES MELLITUS
  3. HUMULIN U [Suspect]
     Indication: DIABETES MELLITUS
  4. HUMULIN L [Suspect]
     Indication: DIABETES MELLITUS
  5. INSULIN [Suspect]
     Indication: DIABETES MELLITUS
  6. LANTUS [Concomitant]
  7. ENALAPRIL [Concomitant]

REACTIONS (5)
  - BLINDNESS [None]
  - DIABETIC RETINOPATHY [None]
  - HYPOTHYROIDISM [None]
  - PHARMACEUTICAL PRODUCT COMPLAINT [None]
  - RETINAL DETACHMENT [None]
